FAERS Safety Report 9114587 (Version 1)
Quarter: 2013Q3

REPORT INFORMATION
  Report Type: Spontaneous
  Country: US (occurrence: None)
  Receive Date: 20130220
  Receipt Date: 20130220
  Transmission Date: 20140515
  Serious: Yes (Hospitalization)
  Sender: FDA-Public Use
  Company Number: None

PATIENT
  Age: 42 Year
  Sex: Female
  Weight: 61.24 kg

DRUGS (1)
  1. VENOFER [Suspect]
     Indication: IRON DEFICIENCY ANAEMIA
     Dosage: PUSH
     Route: 042
     Dates: start: 20130219

REACTIONS (5)
  - Infusion related reaction [None]
  - Burning sensation [None]
  - Hyperhidrosis [None]
  - Loss of consciousness [None]
  - Blood pressure decreased [None]
